FAERS Safety Report 5247110-7 (Version None)
Quarter: 2007Q1

REPORT INFORMATION
  Report Type: 
  Country: None (occurrence: None)
  Receive Date: 20070226
  Receipt Date: 20070213
  Transmission Date: 20070707
  Serious: Yes (Hospitalization)
  Sender: FDA-Public Use
  Company Number: JP-MERCK-0701USA03854

PATIENT
  Age: 72 Year
  Sex: Male

DRUGS (16)
  1. PEPCID RPD [Suspect]
     Indication: GASTRIC ULCER HAEMORRHAGE
     Route: 048
     Dates: start: 20061227, end: 20070114
  2. GASCON [Concomitant]
     Indication: CONSTIPATION
     Route: 048
     Dates: end: 20070114
  3. PANTOSIN [Concomitant]
     Indication: CONSTIPATION
     Route: 048
     Dates: end: 20070114
  4. MAGNESIUM OXIDE [Concomitant]
     Indication: CONSTIPATION
     Route: 048
     Dates: end: 20070114
  5. NEOSTIGMINE BROMIDE [Concomitant]
     Indication: CONSTIPATION
     Route: 065
     Dates: end: 20070114
  6. TASMOLIN TABLETS [Concomitant]
     Indication: SCHIZOPHRENIA
     Route: 048
     Dates: end: 20070114
  7. RISPERDAL [Concomitant]
     Indication: SCHIZOPHRENIA
     Route: 048
     Dates: end: 20070114
  8. THEO-DUR [Concomitant]
     Route: 048
     Dates: end: 20070114
  9. TULOBUTEROL [Concomitant]
     Route: 065
     Dates: end: 20070114
  10. AMOBAN [Concomitant]
     Indication: SCHIZOPHRENIA
     Route: 048
     Dates: end: 20070114
  11. PURSENNID [Concomitant]
     Indication: CONSTIPATION
     Route: 048
     Dates: end: 20070114
  12. SENNA [Concomitant]
     Indication: CONSTIPATION
     Route: 048
     Dates: end: 20070114
  13. HALOPERIDOL [Concomitant]
     Indication: SCHIZOPHRENIA
     Route: 048
     Dates: end: 20070111
  14. LEVOMEPROMAZINE MALEATE [Concomitant]
     Indication: SCHIZOPHRENIA
     Route: 048
     Dates: end: 20070111
  15. TEGRETOL [Concomitant]
     Indication: EPILEPSY
     Route: 048
     Dates: end: 20070111
  16. TAKEPRON [Suspect]
     Indication: GASTRIC ULCER HAEMORRHAGE
     Route: 048
     Dates: start: 20061130, end: 20061227

REACTIONS (1)
  - ACUTE HEPATIC FAILURE [None]
